FAERS Safety Report 25130293 (Version 1)
Quarter: 2025Q1

REPORT INFORMATION
  Report Type: Spontaneous
  Country: US (occurrence: US)
  Receive Date: 20250327
  Receipt Date: 20250327
  Transmission Date: 20250408
  Serious: No
  Sender: ESPERION THERAPEUTICS
  Company Number: US-ESPERIONTHERAPEUTICS-2024USA01124

PATIENT
  Age: 66 Year
  Sex: Male

DRUGS (2)
  1. NEXLIZET [Suspect]
     Active Substance: BEMPEDOIC ACID\EZETIMIBE
     Indication: Product used for unknown indication
     Dosage: 180/10MG, QD
     Route: 065
     Dates: start: 202006, end: 20240318
  2. NEXLIZET [Suspect]
     Active Substance: BEMPEDOIC ACID\EZETIMIBE
     Dosage: 180/10MG, QD
     Route: 065
     Dates: start: 20240701

REACTIONS (2)
  - Blood uric acid increased [Recovered/Resolved]
  - Gout [Recovered/Resolved]
